FAERS Safety Report 7314395-2 (Version None)
Quarter: 2011Q1

REPORT INFORMATION
  Report Type: 
  Country: None (occurrence: None)
  Receive Date: 20110225
  Receipt Date: 20100820
  Transmission Date: 20110831
  Serious: No
  Sender: FDA-Public Use
  Company Number: US-MYLANLABS-2010S1014583

PATIENT
  Age: 34 Year
  Sex: Female

DRUGS (7)
  1. AMNESTEEM [Suspect]
     Route: 048
     Dates: start: 20100604, end: 20100709
  2. CELEXA [Concomitant]
  3. AMNESTEEM [Suspect]
     Indication: ACNE
     Route: 048
     Dates: start: 20100321
  4. AMNESTEEM [Suspect]
     Route: 048
     Dates: start: 20100503, end: 20100602
  5. ORAL CONTRACEPTIVE NOS [Concomitant]
  6. AMNESTEEM [Suspect]
     Route: 048
     Dates: start: 20100602, end: 20100603
  7. ZYRTEC [Concomitant]

REACTIONS (1)
  - HYPERTRIGLYCERIDAEMIA [None]
